FAERS Safety Report 13380527 (Version 1)
Quarter: 2017Q1

REPORT INFORMATION
  Report Type: Spontaneous
  Country: NO (occurrence: NO)
  Receive Date: 20170329
  Receipt Date: 20170329
  Transmission Date: 20170429
  Serious: Yes (Other)
  Sender: FDA-Public Use
  Company Number: NO-SHIRE-NO201706207

PATIENT
  Age: 74 Year
  Sex: Female

DRUGS (4)
  1. FAT EMULSION NOS [Concomitant]
     Active Substance: EGG PHOSPHOLIPIDS\SAFFLOWER OIL\SOYBEAN OIL
     Indication: PRODUCT USED FOR UNKNOWN INDICATION
     Dosage: 500 ML, OTHER SCT/DAY
     Route: 050
  2. REVESTIVE [Suspect]
     Active Substance: TEDUGLUTIDE
     Indication: SHORT-BOWEL SYNDROME
     Dosage: 5 MG, 1X/DAY:QD (PER DAY)
     Route: 058
  3. NACL [Concomitant]
     Active Substance: SODIUM CHLORIDE
     Indication: PRODUCT USED FOR UNKNOWN INDICATION
     Dosage: 1000 ML, 1X/DAY:QD, (A DAY)
     Route: 050
  4. PARENTERAL [Concomitant]
     Indication: PRODUCT USED FOR UNKNOWN INDICATION
     Dosage: UNK, 1600/DAY
     Route: 050

REACTIONS (3)
  - Cardiac failure [Unknown]
  - Fluid retention [Unknown]
  - Weight increased [Unknown]
